FAERS Safety Report 24449706 (Version 1)
Quarter: 2024Q4

REPORT INFORMATION
  Report Type: Spontaneous
  Country: US (occurrence: None)
  Receive Date: 20241016
  Receipt Date: 20241016
  Transmission Date: 20250115
  Serious: Yes (Life-Threatening, Hospitalization)
  Sender: Public
  Company Number: None

PATIENT
  Age: 69 Year
  Sex: Male
  Weight: 61 kg

DRUGS (1)
  1. DOXYCYCLINE HYCLATE [Suspect]
     Active Substance: DOXYCYCLINE HYCLATE
     Indication: Subcutaneous emphysema
     Dosage: OTHER FREQUENCY : ONCE;?OTHER ROUTE : OTHER;?
     Route: 050
     Dates: start: 20230820, end: 20230820

REACTIONS (4)
  - Obstructive airways disorder [None]
  - Mean arterial pressure decreased [None]
  - Respiratory distress [None]
  - Condition aggravated [None]

NARRATIVE: CASE EVENT DATE: 20230820
